FAERS Safety Report 9416606 (Version 1)
Quarter: 2013Q3

REPORT INFORMATION
  Report Type: Spontaneous
  Country: US (occurrence: US)
  Receive Date: 20130724
  Receipt Date: 20130724
  Transmission Date: 20140515
  Serious: Yes (Other)
  Sender: FDA-Public Use
  Company Number: US-BAYER-2013-088698

PATIENT
  Sex: Female

DRUGS (1)
  1. MIRENA [Suspect]
     Dosage: 20 MCG/24HR, CONT
     Route: 015
     Dates: start: 200812

REACTIONS (5)
  - Device dislocation [None]
  - Pregnancy with contraceptive device [None]
  - Injury [None]
  - Ovarian cyst [None]
  - Drug ineffective [None]
